FAERS Safety Report 6639428-8 (Version None)
Quarter: 2010Q1

REPORT INFORMATION
  Report Type: 
  Country: None (occurrence: None)
  Receive Date: 20100315
  Receipt Date: 20100226
  Transmission Date: 20100710
  Serious: Yes (Hospitalization, Other)
  Sender: FDA-Public Use
  Company Number: 2010000701

PATIENT
  Age: 56 Year
  Sex: Female
  Weight: 59.4212 kg

DRUGS (2)
  1. ERLOTINIB HYDROCHLORIDE [Suspect]
     Indication: PANCREATIC CARCINOMA
     Dosage: 150 MG, QD, ORAL
     Route: 048
     Dates: start: 20100203, end: 20100215
  2. SORAFENIB [Suspect]
     Indication: PANCREATIC CARCINOMA
     Dosage: 400 MG, BID, ORAL
     Route: 048
     Dates: start: 20100203, end: 20100215

REACTIONS (4)
  - CHOLANGITIS [None]
  - CONFUSIONAL STATE [None]
  - EXFOLIATIVE RASH [None]
  - SEPTIC SHOCK [None]
